FAERS Safety Report 8192072-6 (Version None)
Quarter: 2012Q1

REPORT INFORMATION
  Report Type: 
  Country: None (occurrence: None)
  Receive Date: 20120307
  Receipt Date: 20120227
  Transmission Date: 20120608
  Serious: Yes (Other)
  Sender: FDA-Public Use
  Company Number: US-B.I. PHARMACEUTICALS,INC./RIDGEFIELD-2011-BP-24900BP

PATIENT
  Age: 32 Year
  Sex: Female

DRUGS (3)
  1. TENOFOVIR DISOPROXIL FUMARATE+EMTRICTABINE [Concomitant]
     Route: 048
  2. VIRAMUNE [Suspect]
     Indication: ANTIVIRAL TREATMENT
     Dosage: 400 MG
     Route: 048
  3. ZIDOVUDINE (RETROVIR, ZDV) [Concomitant]
     Dosage: 2000 MG
     Route: 042
     Dates: start: 20111125

REACTIONS (1)
  - PLACENTA PRAEVIA [None]
